FAERS Safety Report 7553082-2 (Version None)
Quarter: 2011Q2

REPORT INFORMATION
  Report Type: 
  Country: None (occurrence: None)
  Receive Date: 20110616
  Receipt Date: 20110615
  Transmission Date: 20111010
  Serious: Yes (Other)
  Sender: FDA-Public Use
  Company Number: US-UCBSA-031319

PATIENT
  Sex: Male
  Weight: 107 kg

DRUGS (1)
  1. CIMZIA [Suspect]
     Indication: CROHN'S DISEASE
     Route: 058
     Dates: start: 20100309, end: 20110311

REACTIONS (1)
  - WHITE BLOOD CELL COUNT INCREASED [None]
